FAERS Safety Report 4709291-0 (Version None)
Quarter: 2005Q3

REPORT INFORMATION
  Report Type: 
  Country: None (occurrence: None)
  Receive Date: 20050707
  Receipt Date: 20050707
  Transmission Date: 20060218
  Serious: No
  Sender: FDA-Public Use
  Company Number: None

PATIENT
  Age: 41 Year
  Sex: Female
  Weight: 68.5 kg

DRUGS (2)
  1. GADOPENTETATE DIMEGLUMINE 100 ML ABBOTT/BERLEX [Suspect]
     Indication: CATHETER PLACEMENT
     Dosage: 50 CC IV INTRAVENOUS
     Route: 042
     Dates: start: 20050705, end: 20050705
  2. GADOPENTETATE DIMEGLUMINE 100 ML ABBOTT/BERLEX [Suspect]
     Indication: HAEMODIALYSIS
     Dosage: 50 CC IV INTRAVENOUS
     Route: 042
     Dates: start: 20050705, end: 20050705

REACTIONS (8)
  - EAR DISORDER [None]
  - INFUSION RELATED REACTION [None]
  - NASAL DISCOMFORT [None]
  - NAUSEA [None]
  - PRURITUS [None]
  - URTICARIA [None]
  - VOMITING [None]
  - WHEEZING [None]
